FAERS Safety Report 7569308-5 (Version None)
Quarter: 2011Q2

REPORT INFORMATION
  Report Type: 
  Country: None (occurrence: None)
  Receive Date: 20110623
  Receipt Date: 20110608
  Transmission Date: 20111010
  Serious: Yes (Other)
  Sender: FDA-Public Use
  Company Number: PHHY2011DE52808

PATIENT
  Sex: Female

DRUGS (2)
  1. GLEEVEC [Suspect]
     Indication: CHRONIC MYELOID LEUKAEMIA
     Dosage: 400 MG, DAILY
     Route: 048
     Dates: start: 20060101
  2. GLEEVEC [Suspect]
     Dosage: DOSE INCREASED
     Route: 048

REACTIONS (8)
  - FATIGUE [None]
  - HAEMOGLOBIN DECREASED [None]
  - NEOPLASM MALIGNANT [None]
  - ASTHENIA [None]
  - FLUID RETENTION [None]
  - PULMONARY MASS [None]
  - PARAESTHESIA [None]
  - EYE SWELLING [None]
